FAERS Safety Report 5083923-2 (Version None)
Quarter: 2006Q3

REPORT INFORMATION
  Report Type: 
  Country: None (occurrence: None)
  Receive Date: 20060727
  Receipt Date: 20060404
  Transmission Date: 20061208
  Serious: Yes (Other)
  Sender: FDA-Public Use
  Company Number: 2006047991

PATIENT
  Age: 83 Year
  Sex: Male

DRUGS (4)
  1. LYRICA [Suspect]
     Indication: NEUROPATHY PERIPHERAL
     Dosage: 50 MG (50 MG, 1 IN 1 D), ORAL
     Route: 048
     Dates: start: 20060301
  2. COUMADIN [Concomitant]
  3. PROTONIX [Concomitant]
  4. BENICAR [Concomitant]

REACTIONS (1)
  - BLOOD PRESSURE INCREASED [None]
